FAERS Safety Report 17514860 (Version 2)
Quarter: 2020Q1

REPORT INFORMATION
  Report Type: Spontaneous
  Country: FR (occurrence: FR)
  Receive Date: 20200309
  Receipt Date: 20200316
  Transmission Date: 20200409
  Serious: Yes (Hospitalization, Other)
  Sender: FDA-Public Use
  Company Number: FR-BRISTOL-MYERS SQUIBB COMPANY-BMS-2020-017327

PATIENT
  Age: 67 Year
  Sex: Female

DRUGS (2)
  1. YERVOY [Suspect]
     Active Substance: IPILIMUMAB
     Indication: METASTATIC MALIGNANT MELANOMA
     Dosage: 4 CURES
     Route: 042
     Dates: start: 20191206, end: 20200207
  2. OPDIVO [Suspect]
     Active Substance: NIVOLUMAB
     Indication: METASTATIC MALIGNANT MELANOMA
     Dosage: 4 CURES
     Route: 042
     Dates: start: 20191206, end: 20200207

REACTIONS (7)
  - Rash maculo-papular [Recovering/Resolving]
  - Vomiting [Recovered/Resolved]
  - Lymphadenopathy [Recovering/Resolving]
  - Granuloma [Recovering/Resolving]
  - Acute kidney injury [Recovering/Resolving]
  - Inflammation [Recovering/Resolving]
  - Diarrhoea [Recovered/Resolved]

NARRATIVE: CASE EVENT DATE: 2020
